FAERS Safety Report 24985363 (Version 2)
Quarter: 2025Q1

REPORT INFORMATION
  Report Type: Spontaneous
  Country: US (occurrence: US)
  Receive Date: 20250219
  Receipt Date: 20250224
  Transmission Date: 20250409
  Serious: No
  Sender: Kenvue
  Company Number: US-KENVUE-20250108702

PATIENT
  Age: 85 Year
  Sex: Female

DRUGS (2)
  1. WOMENS ROGAINE [Suspect]
     Active Substance: MINOXIDIL
     Indication: Alopecia
     Route: 061
     Dates: start: 20250114, end: 202501
  2. WOMENS ROGAINE UNSCENTED [Suspect]
     Active Substance: MINOXIDIL
     Indication: Alopecia
     Route: 061
     Dates: start: 20250114, end: 202501

REACTIONS (4)
  - Hair texture abnormal [Unknown]
  - Poor quality product administered [Unknown]
  - Incorrect dose administered [Unknown]
  - Product formulation issue [Unknown]

NARRATIVE: CASE EVENT DATE: 20250101
